APPROVED DRUG PRODUCT: AVANAFIL
Active Ingredient: AVANAFIL
Strength: 200MG
Dosage Form/Route: TABLET;ORAL
Application: A209266 | Product #003 | TE Code: AB
Applicant: HETERO LABS LTD UNIT V
Approved: Jun 14, 2024 | RLD: No | RS: No | Type: RX